FAERS Safety Report 6464233-5 (Version None)
Quarter: 2009Q4

REPORT INFORMATION
  Report Type: 
  Country: None (occurrence: None)
  Receive Date: 20091201
  Receipt Date: 20091125
  Transmission Date: 20100525
  Serious: Yes (Hospitalization, Disabling, Other)
  Sender: FDA-Public Use
  Company Number: AT-BAYER-200937744GPV

PATIENT
  Age: 63 Year
  Sex: Male
  Weight: 76 kg

DRUGS (10)
  1. SORAFENIB [Suspect]
     Indication: HEPATIC NEOPLASM MALIGNANT
     Dosage: TOTAL DAILY DOSE: 800 MG
     Route: 048
     Dates: start: 20090812, end: 20091008
  2. DOXORUBICIN HCL [Suspect]
     Indication: HEPATIC NEOPLASM MALIGNANT
  3. PANTOPRAZOLE [Concomitant]
     Indication: PROPHYLAXIS
     Route: 048
     Dates: start: 20000101
  4. TENORETIC 100 [Concomitant]
     Indication: HYPERTENSION
     Dosage: 1/2-0-0
     Route: 048
     Dates: start: 20000101
  5. ALDACTONE SALTUCIN [BUTIZIDE,SPIRONOLACTONE] [Concomitant]
     Indication: OEDEMA PERIPHERAL
     Route: 048
     Dates: start: 20000101
  6. HEPA MERZ [ORNITHINE ASPARTATE] [Concomitant]
     Indication: PROPHYLAXIS
     Route: 048
     Dates: start: 20000101
  7. ROCEPHIN [Concomitant]
     Route: 042
     Dates: start: 20091008, end: 20091024
  8. NOVALGIN [Concomitant]
     Indication: PAIN
     Route: 042
     Dates: start: 20091007, end: 20091007
  9. METOCLOPRAMIDE HYDROCHLORIDE [Concomitant]
     Indication: NAUSEA
     Route: 042
     Dates: start: 20091007, end: 20091007
  10. AQUAPHORIL [Concomitant]
     Indication: OEDEMA PERIPHERAL
     Route: 048
     Dates: start: 20000101, end: 20091005

REACTIONS (2)
  - PERIPHERAL ARTERIAL OCCLUSIVE DISEASE [None]
  - SKIN ULCER [None]
